FAERS Safety Report 6716132-9 (Version None)
Quarter: 2010Q2

REPORT INFORMATION
  Report Type: 
  Country: None (occurrence: None)
  Receive Date: 20100506
  Receipt Date: 20100506
  Transmission Date: 20101027
  Serious: Yes (Hospitalization)
  Sender: FDA-Public Use
  Company Number: None

PATIENT
  Sex: Male
  Weight: 83.0083 kg

DRUGS (7)
  1. IXABEPILONE: DAY 1 OF EVERY CYCLE [Suspect]
     Indication: RECTAL CANCER METASTATIC
     Dosage: 61 MG CYCLE 1 DAY 1: 3/16/10
     Dates: start: 20100316
  2. SUNITINIB: EVERY DAY STARTING ON DAY 8 [Suspect]
     Dosage: 37.5 MG CYCLE 1 DAY 8: 3/23/10
     Dates: start: 20100323
  3. SYNTHROID [Concomitant]
  4. DILTIAZEM CD [Concomitant]
  5. LOMOTIL [Concomitant]
  6. COMPAZINE [Concomitant]
  7. ZOFRAN [Concomitant]

REACTIONS (4)
  - DEHYDRATION [None]
  - DIARRHOEA [None]
  - FATIGUE [None]
  - HYPOPHAGIA [None]
